FAERS Safety Report 8244806-X (Version None)
Quarter: 2012Q1

REPORT INFORMATION
  Report Type: 
  Country: None (occurrence: None)
  Receive Date: 20120329
  Receipt Date: 20110425
  Transmission Date: 20120608
  Serious: No
  Sender: FDA-Public Use
  Company Number: US-MYLANLABS-2011S1008629

PATIENT
  Age: 49 Year
  Sex: Male
  Weight: 56.25 kg

DRUGS (1)
  1. FENTANYL-100 [Suspect]
     Indication: OESOPHAGEAL CARCINOMA
     Dosage: CHANGED Q 72 HOURS.
     Route: 062
     Dates: start: 20110421, end: 20110424

REACTIONS (1)
  - JOINT SWELLING [None]
